FAERS Safety Report 6880154-8 (Version None)
Quarter: 2010Q3

REPORT INFORMATION
  Report Type: 
  Country: None (occurrence: None)
  Receive Date: 20100728
  Receipt Date: 20100222
  Transmission Date: 20110219
  Serious: No
  Sender: FDA-Public Use
  Company Number: US-BRISTOL-MYERS SQUIBB COMPANY-14987853

PATIENT
  Age: 92 Year
  Sex: Female
  Weight: 49 kg

DRUGS (7)
  1. SPRYCEL [Suspect]
     Indication: CHRONIC MYELOID LEUKAEMIA
     Dosage: INTERRUPTED ON 02FEB2010 + RESTARTED AT 70MG EVERY OTHER DAY
     Dates: start: 20100129, end: 20100202
  2. LASIX [Concomitant]
  3. ATENOLOL [Concomitant]
  4. ASPIRIN [Concomitant]
  5. DIGOXIN [Concomitant]
  6. NIFEREX [Concomitant]
  7. ALDACTONE [Concomitant]

REACTIONS (3)
  - PERIORBITAL OEDEMA [None]
  - RASH [None]
  - SKIN EXFOLIATION [None]
